FAERS Safety Report 6775251-1 (Version None)
Quarter: 2010Q2

REPORT INFORMATION
  Report Type: 
  Country: None (occurrence: None)
  Receive Date: 20100615
  Receipt Date: 20100615
  Transmission Date: 20101027
  Serious: Yes (Life-Threatening)
  Sender: FDA-Public Use
  Company Number: None

PATIENT
  Age: 42 Year
  Sex: Female
  Weight: 114.76 kg

DRUGS (2)
  1. PROAIR HFA [Suspect]
     Indication: ASTHMA
     Dosage: 2 PUFFS EVERY 4 HOURS, AS
     Dates: start: 20100417, end: 20100612
  2. PROAIR HFA [Suspect]
     Indication: BRONCHITIS
     Dosage: 2 PUFFS EVERY 4 HOURS, AS
     Dates: start: 20100417, end: 20100612

REACTIONS (4)
  - CONDITION AGGRAVATED [None]
  - COUGH [None]
  - DYSPNOEA [None]
  - FEAR [None]
